FAERS Safety Report 6438785-5 (Version None)
Quarter: 2009Q4

REPORT INFORMATION
  Report Type: 
  Country: None (occurrence: None)
  Receive Date: 20091113
  Receipt Date: 20091103
  Transmission Date: 20100525
  Serious: No
  Sender: FDA-Public Use
  Company Number: US-JNJFOC-20091101736

PATIENT
  Sex: Male
  Weight: 79.38 kg

DRUGS (1)
  1. DURAGESIC-100 [Suspect]
     Indication: ISCHAEMIC NEUROPATHY
     Route: 062
     Dates: start: 20091103

REACTIONS (1)
  - DRUG ADMINISTERED AT INAPPROPRIATE SITE [None]
